FAERS Safety Report 4630235-4 (Version None)
Quarter: 2005Q2

REPORT INFORMATION
  Report Type: 
  Country: None (occurrence: None)
  Receive Date: 20050406
  Receipt Date: 20050318
  Transmission Date: 20051028
  Serious: Yes (Death)
  Sender: FDA-Public Use
  Company Number: FR_050306094

PATIENT
  Age: 30 Year
  Sex: Male

DRUGS (2)
  1. ZYPREXA [Suspect]
     Indication: DELUSION
     Dosage: 10 MG DAY
     Dates: start: 20050101
  2. VALIUM [Concomitant]

REACTIONS (1)
  - DEATH [None]
